FAERS Safety Report 14637542 (Version 2)
Quarter: 2018Q2

REPORT INFORMATION
  Report Type: Report from Study
  Country: FR (occurrence: FR)
  Receive Date: 20180314
  Receipt Date: 20180508
  Transmission Date: 20180711
  Serious: Yes (Other)
  Sender: FDA-Public Use
  Company Number: FR-PFIZER INC-2018097025

PATIENT
  Age: 17 Year
  Sex: Female

DRUGS (19)
  1. VINCRISTINE SULFATE. [Suspect]
     Active Substance: VINCRISTINE SULFATE
     Indication: ACUTE LYMPHOCYTIC LEUKAEMIA
     Dosage: 2 MG, UNK
     Route: 042
     Dates: start: 20171211
  2. METHOTREXATE. [Suspect]
     Active Substance: METHOTREXATE
     Dosage: 15 MG, UNK
     Route: 037
     Dates: start: 20171218
  3. ONCASPAR [Suspect]
     Active Substance: PEGASPARGASE
     Indication: ACUTE LYMPHOCYTIC LEUKAEMIA
     Dosage: 3900 IU, UNK
     Route: 042
     Dates: start: 20171218
  4. DAUNORUBICIN [Suspect]
     Active Substance: DAUNORUBICIN
     Indication: ACUTE LYMPHOCYTIC LEUKAEMIA
     Dosage: 47 MG, UNK
     Route: 042
     Dates: start: 20171211
  5. FORTUM [Concomitant]
     Active Substance: CEFTAZIDIME
     Indication: INFECTION PROPHYLAXIS
     Dosage: UNK
  6. METHOTREXATE. [Suspect]
     Active Substance: METHOTREXATE
     Indication: ACUTE LYMPHOCYTIC LEUKAEMIA
     Dosage: 15 MG, UNK
     Route: 037
     Dates: start: 20171205
  7. NUBAIN [Concomitant]
     Active Substance: NALBUPHINE HYDROCHLORIDE
     Indication: ANALGESIC THERAPY
     Dosage: UNK
  8. PARACETAMOL [Concomitant]
     Active Substance: ACETAMINOPHEN
     Indication: ANALGESIC THERAPY
     Dosage: UNK
  9. PLITICAN [Concomitant]
     Active Substance: ALIZAPRIDE HYDROCHLORIDE
     Indication: PROPHYLAXIS OF NAUSEA AND VOMITING
     Dosage: UNK
  10. PREDNISOLONE. [Suspect]
     Active Substance: PREDNISOLONE
     Indication: ANTIINFLAMMATORY THERAPY
     Dosage: 95 MG, UNK
     Route: 042
     Dates: start: 20171207, end: 20171221
  11. PREDNISOLONE. [Suspect]
     Active Substance: PREDNISOLONE
     Indication: ACUTE LYMPHOCYTIC LEUKAEMIA
  12. PENTACARINAT [Concomitant]
     Active Substance: PENTAMIDINE ISETHIONATE
     Indication: INFECTION PROPHYLAXIS
     Dosage: UNK
  13. ZOPHREN [Concomitant]
     Active Substance: ONDANSETRON
     Indication: PROPHYLAXIS OF NAUSEA AND VOMITING
     Dosage: UNK
  14. HYDROCORTISONE. [Suspect]
     Active Substance: HYDROCORTISONE
     Indication: ACUTE LYMPHOCYTIC LEUKAEMIA
     Dosage: 15 MG, UNK
     Route: 037
     Dates: start: 20171218
  15. AMIKLIN [Concomitant]
     Active Substance: AMIKACIN SULFATE
     Indication: INFECTION PROPHYLAXIS
     Dosage: UNK
  16. SALBUTAMOL [Concomitant]
     Active Substance: ALBUTEROL
     Indication: ASTHMA PROPHYLAXIS
     Dosage: UNK
  17. CYTARABINE. [Suspect]
     Active Substance: CYTARABINE
     Indication: ACUTE LYMPHOCYTIC LEUKAEMIA
     Dosage: 30 MG, UNK
     Route: 037
     Dates: start: 20171218
  18. FORTUM [Concomitant]
     Active Substance: CEFTAZIDIME
     Dosage: UNK
  19. BACTRIM [Concomitant]
     Active Substance: SULFAMETHOXAZOLE\TRIMETHOPRIM
     Indication: INFECTION PROPHYLAXIS
     Dosage: UNK

REACTIONS (1)
  - Hypofibrinogenaemia [Recovered/Resolved]

NARRATIVE: CASE EVENT DATE: 20171220
